FAERS Safety Report 23341102 (Version 1)
Quarter: 2023Q4

REPORT INFORMATION
  Report Type: Spontaneous
  Country: US (occurrence: US)
  Receive Date: 20231227
  Receipt Date: 20231227
  Transmission Date: 20240110
  Serious: Yes (Other)
  Sender: FDA-Public Use
  Company Number: US-BRISTOL-MYERS SQUIBB COMPANY-2023-184981

PATIENT
  Age: 71 Year
  Sex: Male
  Weight: 135.17 kg

DRUGS (2)
  1. REVLIMID [Suspect]
     Active Substance: LENALIDOMIDE
     Indication: Plasma cell myeloma
     Dosage: FREQUENCY: 21
     Dates: start: 20230710
  2. REVLIMID [Suspect]
     Active Substance: LENALIDOMIDE
     Dosage: 3W, 1W OFF
     Route: 048

REACTIONS (2)
  - Haemoptysis [Unknown]
  - Fatigue [Unknown]

NARRATIVE: CASE EVENT DATE: 20230101
